FAERS Safety Report 4342541-1 (Version None)
Quarter: 2004Q1

REPORT INFORMATION
  Report Type: 
  Country: None (occurrence: None)
  Receive Date: 20040213
  Receipt Date: 20040102
  Transmission Date: 20041129
  Serious: Yes (Other)
  Sender: FDA-Public Use
  Company Number: 355107

PATIENT

DRUGS (1)
  1. PEGASYS [Suspect]
     Dosage: OTHER
     Route: 050

REACTIONS (1)
  - NEUTROPENIA [None]
